FAERS Safety Report 23784411 (Version 1)
Quarter: 2024Q2

REPORT INFORMATION
  Report Type: Spontaneous
  Country: US (occurrence: None)
  Receive Date: 20240425
  Receipt Date: 20240425
  Transmission Date: 20240716
  Serious: No
  Sender: FDA-Public Use
  Company Number: None

PATIENT
  Age: 64 Year
  Sex: Male
  Weight: 96.5 kg

DRUGS (1)
  1. DUPILUMAB [Suspect]
     Active Substance: DUPILUMAB
     Indication: Asthma
     Dosage: 2 ML Q2WEEKS SUBDERMAL?
     Dates: start: 20220101

REACTIONS (4)
  - Dysphonia [None]
  - Oropharyngeal discomfort [None]
  - Laryngitis bacterial [None]
  - Laryngeal inflammation [None]

NARRATIVE: CASE EVENT DATE: 20240226
